FAERS Safety Report 12075187 (Version 9)
Quarter: 2017Q1

REPORT INFORMATION
  Report Type: Report from Study
  Country: US (occurrence: US)
  Receive Date: 20160212
  Receipt Date: 20170224
  Transmission Date: 20170428
  Serious: Yes (Death, Hospitalization)
  Sender: FDA-Public Use
  Company Number: US-ACTELION-A-NJ2016-131263

PATIENT
  Age: 75 Year
  Sex: Male
  Weight: 44.44 kg

DRUGS (4)
  1. COUMADIN [Concomitant]
     Active Substance: WARFARIN SODIUM
  2. DILTIAZEM. [Concomitant]
     Active Substance: DILTIAZEM
  3. VELETRI [Suspect]
     Active Substance: EPOPROSTENOL
     Indication: PULMONARY ARTERIAL HYPERTENSION
     Dosage: 88 UNK, UNK
     Route: 042
  4. VELETRI [Suspect]
     Active Substance: EPOPROSTENOL
     Dosage: 68 NG/KG, PER MIN
     Route: 042
     Dates: start: 20130103

REACTIONS (24)
  - Pleural effusion [Unknown]
  - Feeling hot [Unknown]
  - Rash [Unknown]
  - Dehydration [Unknown]
  - Pain in jaw [Unknown]
  - Clostridium difficile infection [Unknown]
  - Nausea [Unknown]
  - Asthenia [Not Recovered/Not Resolved]
  - Device connection issue [Unknown]
  - Decreased appetite [Unknown]
  - Abdominal discomfort [Unknown]
  - Death [Fatal]
  - Confusional state [Unknown]
  - Dyspnoea [Unknown]
  - Myalgia [Unknown]
  - Cardiac failure [Unknown]
  - Weight decreased [Unknown]
  - Device leakage [Recovered/Resolved]
  - Pneumonia [Unknown]
  - Pyrexia [Unknown]
  - Influenza [Unknown]
  - Diarrhoea [Unknown]
  - Pallor [Unknown]
  - Drug dose omission [Unknown]

NARRATIVE: CASE EVENT DATE: 20170214
